FAERS Safety Report 15489249 (Version 1)
Quarter: 2018Q4

REPORT INFORMATION
  Report Type: Spontaneous
  Country: JP (occurrence: JP)
  Receive Date: 20181011
  Receipt Date: 20181011
  Transmission Date: 20190205
  Serious: Yes (Other)
  Sender: FDA-Public Use
  Company Number: JP-ELI_LILLY_AND_COMPANY-JP201810004467

PATIENT
  Age: 66 Year
  Sex: Female

DRUGS (7)
  1. CANAGLU [Concomitant]
     Active Substance: CANAGLIFLOZIN
     Route: 048
  2. TRULICITY [Suspect]
     Active Substance: DULAGLUTIDE
     Indication: DIABETES MELLITUS
     Dosage: 0.75 MG, WEEKLY (1/W)
     Route: 058
  3. EPERISONE HYDROCHLORIDE [Concomitant]
     Active Substance: EPERISONE HYDROCHLORIDE
     Route: 048
  4. TEPRENONE [Concomitant]
     Active Substance: TEPRENONE
     Route: 048
  5. METFORMIN HYDROCHLORIDE MT [Suspect]
     Active Substance: METFORMIN HYDROCHLORIDE
     Indication: DIABETES MELLITUS
     Route: 048
  6. TRICOR [Concomitant]
     Active Substance: FENOFIBRATE
     Route: 048
  7. METHYCOBAL [Concomitant]
     Active Substance: METHYLCOBALAMIN
     Route: 048

REACTIONS (1)
  - Lactic acidosis [Recovered/Resolved]
